FAERS Safety Report 11844950 (Version 1)
Quarter: 2015Q4

REPORT INFORMATION
  Report Type: Spontaneous
  Country: US (occurrence: US)
  Receive Date: 20151217
  Receipt Date: 20151217
  Transmission Date: 20160305
  Serious: No
  Sender: FDA-Public Use
  Company Number: GXBR2015US000817

PATIENT
  Age: 74 Year
  Sex: Female
  Weight: 90.7 kg

DRUGS (2)
  1. BABY ASPIRIN [Concomitant]
     Active Substance: ASPIRIN
     Indication: CARDIAC DISORDER
     Dosage: UNK DF, UNK
     Dates: start: 201410
  2. AMIODARONE HYDROCHLORIDE. [Suspect]
     Active Substance: AMIODARONE HYDROCHLORIDE
     Indication: HEART RATE
     Dosage: 200 MG, QD
     Route: 048
     Dates: start: 20140828, end: 20140906

REACTIONS (7)
  - Abasia [Recovering/Resolving]
  - Fall [Recovered/Resolved]
  - Muscular weakness [Recovering/Resolving]
  - Alopecia [Recovered/Resolved]
  - Peripheral swelling [Recovering/Resolving]
  - Rash [Unknown]
  - Fatigue [Unknown]

NARRATIVE: CASE EVENT DATE: 201409
